FAERS Safety Report 7402623-4 (Version None)
Quarter: 2011Q1

REPORT INFORMATION
  Report Type: 
  Country: None (occurrence: None)
  Receive Date: 20110331
  Receipt Date: 20110322
  Transmission Date: 20110831
  Serious: Yes (Hospitalization, Other)
  Sender: FDA-Public Use
  Company Number: 2010AC000330

PATIENT
  Age: 59 Year
  Sex: Female

DRUGS (53)
  1. COUMADIN [Concomitant]
  2. PERCOCET [Concomitant]
  3. LEVAQUIN [Concomitant]
  4. CELEXA [Concomitant]
  5. CITRACAL D [Concomitant]
  6. MIRAPEX [Concomitant]
  7. HUMIBID INSULIN [Concomitant]
  8. HEPARIN [Concomitant]
  9. PRILOSEC [Concomitant]
  10. OSCAL [Concomitant]
  11. IMDUR [Concomitant]
  12. PROMETHAZINE [Concomitant]
  13. ASPIRIN [Concomitant]
  14. POTASSIUM [Concomitant]
  15. QUININE SULFATE [Concomitant]
  16. SYNTHROID [Concomitant]
  17. MORPHINE [Concomitant]
  18. NITROGLYCERIN [Concomitant]
  19. VITAMIN D [Concomitant]
  20. IBUPROFEN [Concomitant]
  21. METOLAZONE [Concomitant]
  22. DIGOXIN [Suspect]
     Indication: HEART RATE ABNORMAL
     Dosage: 0.125 MG;BID;PO
     Route: 048
     Dates: start: 20030901, end: 20080101
  23. NEURONTIN [Concomitant]
  24. LASIX [Concomitant]
  25. CALCIUM CARBONATE [Concomitant]
  26. PREDNISONE [Concomitant]
  27. SINGULAIR [Concomitant]
  28. FLEXERIL [Concomitant]
  29. TEGRETOL [Concomitant]
  30. VICODIN [Concomitant]
  31. MIRTAZAPINE [Concomitant]
  32. SOLU-MEDROL [Concomitant]
  33. VENTOLIN [Concomitant]
  34. ATROVENT [Concomitant]
  35. METHADONE HCL [Concomitant]
  36. NEXIUM [Concomitant]
  37. TAZTIA [Concomitant]
  38. LEVOXYL [Concomitant]
  39. ATROVENT [Concomitant]
  40. CARDIZEM [Concomitant]
  41. MEDROL [Concomitant]
  42. LORAZEPAM [Concomitant]
  43. ALPRAZOLAM [Concomitant]
  44. DARVOCET [Concomitant]
  45. XOPENEX [Concomitant]
  46. DIGOXIN [Suspect]
     Dosage: ; PO
     Route: 048
     Dates: start: 20060301, end: 20080601
  47. LISINOPRIL [Concomitant]
  48. CLONIDINE [Concomitant]
  49. SENOKOT [Concomitant]
  50. CLONIDINE [Concomitant]
  51. TRAZODONE HCL [Concomitant]
  52. PROMETHAZINE [Concomitant]
  53. PHENERGAN HCL [Concomitant]

REACTIONS (36)
  - CARDIAC DISORDER [None]
  - OSTEOARTHRITIS [None]
  - HAEMATOMA [None]
  - CHRONIC OBSTRUCTIVE PULMONARY DISEASE [None]
  - TRANSIENT ISCHAEMIC ATTACK [None]
  - ROAD TRAFFIC ACCIDENT [None]
  - CONTUSION [None]
  - BACK PAIN [None]
  - ARTERIOSCLEROSIS CORONARY ARTERY [None]
  - EXCORIATION [None]
  - FALL [None]
  - ATRIAL TACHYCARDIA [None]
  - RENAL FAILURE ACUTE [None]
  - CARDIOMEGALY [None]
  - ANXIETY [None]
  - ECONOMIC PROBLEM [None]
  - BRONCHOSPASM [None]
  - HYPERTENSION [None]
  - NAUSEA [None]
  - URINARY TRACT INFECTION [None]
  - ATRIOVENTRICULAR BLOCK FIRST DEGREE [None]
  - ATRIAL FIBRILLATION [None]
  - PAIN [None]
  - NECK PAIN [None]
  - TRICUSPID VALVE INCOMPETENCE [None]
  - MYOCARDIAL INFARCTION [None]
  - CEREBRAL INFARCTION [None]
  - RHONCHI [None]
  - EXTRASYSTOLES [None]
  - HEAD INJURY [None]
  - RIGHT VENTRICULAR HYPERTROPHY [None]
  - PNEUMONIA [None]
  - OSTEOPENIA [None]
  - CEREBRAL ATROPHY [None]
  - DRUG ABUSER [None]
  - INJURY [None]
